FAERS Safety Report 10136360 (Version 1)
Quarter: 2014Q2

REPORT INFORMATION
  Report Type: Spontaneous
  Country: US (occurrence: None)
  Receive Date: 20140428
  Receipt Date: 20140428
  Transmission Date: 20141212
  Serious: Yes (Death)
  Sender: FDA-Public Use
  Company Number: None

PATIENT
  Age: 73 Year
  Sex: Female

DRUGS (1)
  1. ENBREL SURECLICK PEN 50MG [Suspect]
     Indication: RHEUMATOID ARTHRITIS
     Dosage: 50MG, QWEEKLY, SQ
     Route: 058
     Dates: start: 20120213, end: 20140315

REACTIONS (1)
  - Cardiac failure congestive [None]
